FAERS Safety Report 24054015 (Version 1)
Quarter: 2024Q3

REPORT INFORMATION
  Report Type: Spontaneous
  Country: ZA (occurrence: None)
  Receive Date: 20240705
  Receipt Date: 20240705
  Transmission Date: 20241017
  Serious: Yes (Death)
  Sender: ASTRAZENECA
  Company Number: 2024A152136

PATIENT
  Age: 28854 Day
  Sex: Female

DRUGS (3)
  1. BUDESONIDE\FORMOTEROL [Suspect]
     Active Substance: BUDESONIDE\FORMOTEROL
     Indication: Asthma
     Dosage: 160/4.5 UG, UNKNOWN FREQUENCY UNKNOWN
     Route: 055
  2. ALBUTEROL [Concomitant]
     Active Substance: ALBUTEROL
     Indication: Bronchospasm
     Dosage: 200UG/INHAL
     Route: 055
  3. BIO-CIMETIDINE [Concomitant]
     Indication: Antacid therapy
     Route: 048

REACTIONS (1)
  - Pneumonia [Fatal]
